FAERS Safety Report 19349583 (Version 1)
Quarter: 2021Q2

REPORT INFORMATION
  Report Type: Spontaneous
  Country: US (occurrence: US)
  Receive Date: 20210531
  Receipt Date: 20210531
  Transmission Date: 20210717
  Serious: Yes (Other)
  Sender: FDA-Public Use
  Company Number: None

PATIENT
  Age: 47 Year
  Sex: Female
  Weight: 83.7 kg

DRUGS (2)
  1. BETAMETHASONE DIPROPIONATE OINTMENT [Concomitant]
     Active Substance: BETAMETHASONE DIPROPIONATE
     Dates: start: 20200915
  2. OTEZLA [Suspect]
     Active Substance: APREMILAST
     Indication: PSORIASIS
     Route: 048
     Dates: start: 20201217

REACTIONS (3)
  - Rash erythematous [None]
  - Rash pruritic [None]
  - Photosensitivity reaction [None]

NARRATIVE: CASE EVENT DATE: 20210528
